FAERS Safety Report 6257701-2 (Version None)
Quarter: 2009Q3

REPORT INFORMATION
  Report Type: 
  Country: None (occurrence: None)
  Receive Date: 20090702
  Receipt Date: 20090622
  Transmission Date: 20100115
  Serious: Yes (Death, Hospitalization)
  Sender: FDA-Public Use
  Company Number: 2009AL004052

PATIENT
  Age: 68 Year
  Sex: Male

DRUGS (2)
  1. IRINOTECAN HCL [Suspect]
     Indication: DISEASE PROGRESSION
     Dosage: QW
  2. FLUOROURACIL [Concomitant]

REACTIONS (16)
  - ACUTE RESPIRATORY FAILURE [None]
  - CYANOSIS [None]
  - DIFFUSE ALVEOLAR DAMAGE [None]
  - DYSPNOEA [None]
  - INTERSTITIAL LUNG DISEASE [None]
  - ISCHAEMIC CARDIOMYOPATHY [None]
  - LEFT VENTRICULAR HYPERTROPHY [None]
  - LUNG DISORDER [None]
  - LUNG INFILTRATION [None]
  - PLEURAL FIBROSIS [None]
  - PNEUMONITIS [None]
  - PULMONARY TOXICITY [None]
  - PYREXIA [None]
  - RESPIRATORY DISTRESS [None]
  - RESPIRATORY FAILURE [None]
  - TACHYPNOEA [None]
